FAERS Safety Report 5830028-6 (Version None)
Quarter: 2008Q3

REPORT INFORMATION
  Report Type: 
  Country: None (occurrence: None)
  Receive Date: 20080801
  Receipt Date: 20080722
  Transmission Date: 20090109
  Serious: Yes (Other)
  Sender: FDA-Public Use
  Company Number: GB-ASTRAZENECA-2008GB01382

PATIENT
  Age: 35 Year
  Sex: Male

DRUGS (5)
  1. QUETIAPINE [Suspect]
     Route: 048
     Dates: start: 20080201, end: 20080601
  2. LAMOTRIGINE [Concomitant]
     Indication: BORDERLINE PERSONALITY DISORDER
     Route: 065
     Dates: start: 20060101
  3. LITHIUM CARBONATE [Concomitant]
     Indication: BORDERLINE PERSONALITY DISORDER
     Dosage: 200MG
     Route: 048
     Dates: start: 20050101
  4. MIRTAZAPINE [Concomitant]
     Indication: BORDERLINE PERSONALITY DISORDER
     Dosage: 45 MG
     Route: 048
     Dates: start: 20080101
  5. ZOPICLONE [Concomitant]
     Indication: SLEEP DISORDER
     Route: 065

REACTIONS (5)
  - CHOKING [None]
  - DYSPHAGIA [None]
  - FATIGUE [None]
  - LETHARGY [None]
  - QUALITY OF LIFE DECREASED [None]
